FAERS Safety Report 7190112-4 (Version None)
Quarter: 2010Q4

REPORT INFORMATION
  Report Type: 
  Country: None (occurrence: None)
  Receive Date: 20101223
  Receipt Date: 20101215
  Transmission Date: 20110411
  Serious: Yes (Other)
  Sender: FDA-Public Use
  Company Number: US-PFIZER INC-2008043510

PATIENT
  Age: 72 Year
  Sex: Female
  Weight: 63.6 kg

DRUGS (1)
  1. XALATAN [Suspect]
     Indication: GLAUCOMA
     Dosage: 1.5 UG, 1X/DAY
     Route: 047
     Dates: start: 20040430

REACTIONS (6)
  - BLOOD CHOLESTEROL INCREASED [None]
  - CRYING [None]
  - EAR DISCOMFORT [None]
  - HEARING IMPAIRED [None]
  - HYPOACUSIS [None]
  - INTRAOCULAR PRESSURE INCREASED [None]
